FAERS Safety Report 10524518 (Version 1)
Quarter: 2014Q4

REPORT INFORMATION
  Report Type: Spontaneous
  Country: US (occurrence: None)
  Receive Date: 20141015
  Receipt Date: 20141015
  Transmission Date: 20150528
  Serious: No
  Sender: FDA-Public Use
  Company Number: None

PATIENT
  Age: 19 Year
  Sex: Female
  Weight: 70.31 kg

DRUGS (1)
  1. VALACYCLOVIR [Suspect]
     Active Substance: VALACYCLOVIR HYDROCHLORIDE
     Indication: GENITAL HERPES SIMPLEX
     Dosage: 1 PILL ONCE DAILY TAKEN BY MOUTH
     Route: 048
     Dates: start: 20140914, end: 20140920

REACTIONS (12)
  - Pyrexia [None]
  - Dizziness [None]
  - Constipation [None]
  - Irritable bowel syndrome [None]
  - Abdominal discomfort [None]
  - Abdominal pain lower [None]
  - Asthenia [None]
  - Retching [None]
  - Fatigue [None]
  - Chills [None]
  - Nausea [None]
  - Diarrhoea [None]

NARRATIVE: CASE EVENT DATE: 20140914
